FAERS Safety Report 14619785 (Version 6)
Quarter: 2018Q3

REPORT INFORMATION
  Report Type: Spontaneous
  Country: AT (occurrence: AT)
  Receive Date: 20180309
  Receipt Date: 20180911
  Transmission Date: 20181010
  Serious: Yes (Death, Hospitalization)
  Sender: FDA-Public Use
  Company Number: AT-CELGENEUS-AUT-20180208857

PATIENT
  Age: 76 Year
  Sex: Male
  Weight: 77 kg

DRUGS (15)
  1. AZACITIDINE. [Suspect]
     Active Substance: AZACITIDINE
     Indication: ACUTE MYELOID LEUKAEMIA
     Dosage: 75 MILLIGRAM/SQ. METER
     Route: 058
     Dates: start: 20180124
  2. MYCOSTATIN [Concomitant]
     Active Substance: NYSTATIN
     Indication: PROPHYLAXIS
     Dosage: 4 MILLILITER
     Route: 048
     Dates: start: 20180126, end: 20180217
  3. MOVICOL [Concomitant]
     Active Substance: POLYETHYLENE GLYCOL 3350\POTASSIUM CHLORIDE\SODIUM BICARBONATE\SODIUM CHLORIDE
     Indication: CONSTIPATION
     Dosage: 13.125 GRAM
     Route: 048
     Dates: start: 20180130, end: 20180314
  4. VENETOCLAX. [Concomitant]
     Active Substance: VENETOCLAX
     Indication: ACUTE MYELOID LEUKAEMIA
     Route: 065
  5. CONCOR [Concomitant]
     Active Substance: BISOPROLOL FUMARATE
     Indication: CONGESTIVE CARDIOMYOPATHY
     Dosage: 10 MILLIGRAM
     Route: 048
     Dates: start: 2012
  6. SPIROBENE [Concomitant]
     Active Substance: SPIRONOLACTONE
     Indication: CONGESTIVE CARDIOMYOPATHY
     Dosage: 25 MILLIGRAM
     Route: 048
     Dates: start: 2012
  7. NEUROMULTIVIT [Concomitant]
     Active Substance: CYANOCOBALAMIN\PYRIDOXINE\THIAMINE
     Indication: POLYNEUROPATHY
     Dosage: 100MG /200MG/200UG
     Route: 048
     Dates: start: 2014, end: 20180314
  8. ALLOPURINOL. [Concomitant]
     Active Substance: ALLOPURINOL
     Indication: PROPHYLAXIS
     Route: 048
     Dates: start: 20180123, end: 20180314
  9. OLEOVIT [Concomitant]
     Indication: VITAMIN D DEFICIENCY
     Dosage: 40 DROPS
     Route: 048
     Dates: start: 2016, end: 20180305
  10. FOLSAN [Concomitant]
     Active Substance: FOLIC ACID
     Indication: FOLATE DEFICIENCY
     Dosage: 5 MILLIGRAM
     Route: 048
     Dates: start: 2015, end: 20180207
  11. RAMIPRIL. [Concomitant]
     Active Substance: RAMIPRIL
     Indication: CONGESTIVE CARDIOMYOPATHY
     Dosage: 10 MILLIGRAM
     Route: 048
     Dates: start: 2012
  12. DIGIMERCK [Concomitant]
     Active Substance: DIGITOXIN
     Indication: CONGESTIVE CARDIOMYOPATHY
     Dosage: .07 MILLIGRAM
     Route: 048
     Dates: start: 2012, end: 20180304
  13. RATIOGRASTIM [Concomitant]
     Active Substance: FILGRASTIM
     Indication: NEUTROPENIA
     Dosage: 30 MIO/IU
     Route: 058
     Dates: start: 20180126, end: 20180207
  14. RATIOGRASTIM [Concomitant]
     Active Substance: FILGRASTIM
     Dosage: 48 INTERNATIONAL UNITS MILLIONS
     Route: 058
     Dates: start: 20180208, end: 20180314
  15. FOLSAN [Concomitant]
     Active Substance: FOLIC ACID
     Dosage: 5 MILLIGRAM
     Route: 048
     Dates: start: 20180305

REACTIONS (3)
  - Klebsiella infection [Fatal]
  - Febrile neutropenia [Recovered/Resolved]
  - Escherichia infection [Fatal]

NARRATIVE: CASE EVENT DATE: 20180217
